FAERS Safety Report 8600939-7 (Version None)
Quarter: 2012Q3

REPORT INFORMATION
  Report Type: 
  Country: None (occurrence: None)
  Receive Date: 20120805
  Receipt Date: 20120719
  Transmission Date: 20120928
  Serious: Yes (Hospitalization, Other)
  Sender: FDA-Public Use
  Company Number: 2012EK000010

PATIENT
  Age: 55 Year
  Sex: Male

DRUGS (4)
  1. CIPROFLOXACIN [Concomitant]
  2. CEFTAZIDIME [Concomitant]
  3. NITRIC OXIDE [Concomitant]
  4. CARDENE [Suspect]
     Indication: HYPERTENSION
     Dosage: 4 MG;QH;IV ; 5 MG;X1;IV
     Route: 042

REACTIONS (1)
  - ACUTE RESPIRATORY DISTRESS SYNDROME [None]
